FAERS Safety Report 11857007 (Version 1)
Quarter: 2015Q4

REPORT INFORMATION
  Report Type: Spontaneous
  Country: US (occurrence: US)
  Receive Date: 20151221
  Receipt Date: 20151221
  Transmission Date: 20160305
  Serious: No
  Sender: FDA-Public Use
  Company Number: US-NOVELLABS-2015-US-000063

PATIENT
  Age: 32 Year
  Sex: Female
  Weight: 68.04 kg

DRUGS (1)
  1. LEVONORGESTREL (MY WAY) [Suspect]
     Active Substance: LEVONORGESTREL
     Dosage: 1 TABLET, ONCE A DAY,
     Route: 048
     Dates: start: 20151029, end: 20151029

REACTIONS (2)
  - Polymenorrhoea [Recovered/Resolved]
  - Menorrhagia [Recovered/Resolved]

NARRATIVE: CASE EVENT DATE: 20151104
